FAERS Safety Report 8809156 (Version 1)
Quarter: 2012Q4

REPORT INFORMATION
  Report Type: 
  Country: KR (occurrence: KR)
  Receive Date: 20120926
  Receipt Date: 20120926
  Transmission Date: 20130627
  Serious: Yes (Other)
  Sender: FDA-Public Use
  Company Number: PHHY2012KR081198

PATIENT
  Age: 69 Year
  Sex: Female
  Weight: 77 kg

DRUGS (1)
  1. DICLOFENAC [Suspect]

REACTIONS (13)
  - Embolia cutis medicamentosa [Unknown]
  - Lividity [Unknown]
  - Injection site necrosis [Unknown]
  - Injection site pain [Unknown]
  - Injection site swelling [Unknown]
  - Injection site erythema [Unknown]
  - Rash macular [Unknown]
  - Injection site haemorrhage [Unknown]
  - Injection site discolouration [Unknown]
  - Eschar [Unknown]
  - Injection site scar [Unknown]
  - Pallor [Unknown]
  - Skin graft [None]
